FAERS Safety Report 18354111 (Version 5)
Quarter: 2020Q4

REPORT INFORMATION
  Report Type: Report from Study
  Country: AU (occurrence: AU)
  Receive Date: 20201006
  Receipt Date: 20201127
  Transmission Date: 20210114
  Serious: Yes (Death, Hospitalization, Other)
  Sender: FDA-Public Use
  Company Number: AU-BEH-2020123166

PATIENT
  Age: 41 Year
  Sex: Female
  Weight: 58 kg

DRUGS (20)
  1. HIZENTRA [Suspect]
     Active Substance: HUMAN IMMUNOGLOBULIN G
     Indication: PRIMARY IMMUNODEFICIENCY SYNDROME
     Dosage: 6 GRAM, QW
     Route: 058
     Dates: start: 20200928, end: 20200928
  2. PANADOL [Concomitant]
     Active Substance: ACETAMINOPHEN
  3. RESPRIM [Concomitant]
     Active Substance: SULFAMETHOXAZOLE\TRIMETHOPRIM
  4. APIXABAN [Concomitant]
     Active Substance: APIXABAN
  5. NICORANDIL [Concomitant]
     Active Substance: NICORANDIL
  6. INSULIN GLARGINE [Concomitant]
     Active Substance: INSULIN GLARGINE
  7. BUDESONIDE. [Concomitant]
     Active Substance: BUDESONIDE
  8. HIZENTRA [Suspect]
     Active Substance: HUMAN IMMUNOGLOBULIN G
     Dosage: UNK
     Route: 058
  9. NEXIUM I.V. [Concomitant]
     Active Substance: ESOMEPRAZOLE SODIUM
  10. AMILORIDE [Concomitant]
     Active Substance: AMILORIDE
  11. BURINEX [Concomitant]
     Active Substance: BUMETANIDE
  12. HYDROCHLOROTHIAZIDE. [Concomitant]
     Active Substance: HYDROCHLOROTHIAZIDE
  13. CARVEDILOL. [Concomitant]
     Active Substance: CARVEDILOL
  14. SPIRONOLACTONE. [Concomitant]
     Active Substance: SPIRONOLACTONE
  15. FENTANYL. [Concomitant]
     Active Substance: FENTANYL
  16. HIZENTRA [Suspect]
     Active Substance: HUMAN IMMUNOGLOBULIN G
     Indication: HYPOGAMMAGLOBULINAEMIA
     Dosage: UNK
     Route: 058
  17. DIGOXIN. [Concomitant]
     Active Substance: DIGOXIN
  18. POTASSIUM [Concomitant]
     Active Substance: POTASSIUM
  19. ENALAPRIL [Concomitant]
     Active Substance: ENALAPRIL
  20. PROTAPHANE [Concomitant]
     Active Substance: INSULIN HUMAN

REACTIONS (12)
  - Arthralgia [Not Recovered/Not Resolved]
  - Sepsis [Unknown]
  - Clostridium difficile infection [Fatal]
  - Renal failure [Unknown]
  - Gait disturbance [Unknown]
  - Septic shock [Unknown]
  - Bacterial toxaemia [Unknown]
  - Myalgia [Not Recovered/Not Resolved]
  - Hepatic failure [Unknown]
  - Pain in extremity [Not Recovered/Not Resolved]
  - Pyrexia [Not Recovered/Not Resolved]
  - General physical health deterioration [Unknown]

NARRATIVE: CASE EVENT DATE: 20200930
